FAERS Safety Report 7415792-7 (Version None)
Quarter: 2011Q2

REPORT INFORMATION
  Report Type: 
  Country: None (occurrence: None)
  Receive Date: 20110406
  Receipt Date: 20110324
  Transmission Date: 20111010
  Serious: Yes (Hospitalization)
  Sender: FDA-Public Use
  Company Number: 2011SP013962

PATIENT

DRUGS (2)
  1. INDOMETHACIN [Suspect]
     Indication: DRUG EXPOSURE DURING PREGNANCY
     Dosage: TRPL
     Route: 064
     Dates: start: 20110324
  2. CELESTONE [Suspect]
     Indication: DRUG EXPOSURE DURING PREGNANCY
     Dosage: TRPL
     Route: 064
     Dates: start: 20110323, end: 20110323

REACTIONS (3)
  - FOETAL HEART RATE INCREASED [None]
  - THREATENED LABOUR [None]
  - MATERNAL DRUGS AFFECTING FOETUS [None]
